FAERS Safety Report 8548217-9 (Version None)
Quarter: 2012Q3

REPORT INFORMATION
  Report Type: 
  Country: None (occurrence: None)
  Receive Date: 20120717
  Receipt Date: 20120713
  Transmission Date: 20120928
  Serious: Yes (Death)
  Sender: FDA-Public Use
  Company Number: 2012-0016

PATIENT
  Age: 5 Year
  Sex: Female

DRUGS (2)
  1. CETIRIZINE, 5 MG / TSP [Suspect]
     Indication: INFLUENZA
     Dosage: ORAL
     Route: 048
  2. PRODUCTS CONTAINING DEXTROMETHORPHAN [Suspect]
     Dosage: ORAL
     Route: 048

REACTIONS (4)
  - PAIN IN EXTREMITY [None]
  - ACCIDENTAL OVERDOSE [None]
  - TOXICITY TO VARIOUS AGENTS [None]
  - MUSCLE SPASMS [None]
